FAERS Safety Report 15562467 (Version 1)
Quarter: 2018Q4

REPORT INFORMATION
  Report Type: Spontaneous
  Country: US (occurrence: US)
  Receive Date: 20181029
  Receipt Date: 20181029
  Transmission Date: 20190205
  Serious: No
  Sender: FDA-Public Use
  Company Number: US-SUNOVION-2018SUN004213

PATIENT
  Sex: Male
  Weight: 79.37 kg

DRUGS (2)
  1. XOPENEX [Suspect]
     Active Substance: LEVALBUTEROL HYDROCHLORIDE
     Indication: EMPHYSEMA
     Dosage: UNK
     Route: 055
     Dates: end: 20181017
  2. OXYGEN. [Concomitant]
     Active Substance: OXYGEN
     Dosage: UNK

REACTIONS (4)
  - Off label use [Unknown]
  - Hypoacusis [Not Recovered/Not Resolved]
  - Bronchospasm [Not Recovered/Not Resolved]
  - Lung disorder [Not Recovered/Not Resolved]
